FAERS Safety Report 9278467 (Version 2)
Quarter: 2013Q3

REPORT INFORMATION
  Report Type: Report from Study
  Country: CA (occurrence: CA)
  Receive Date: 20130508
  Receipt Date: 20130827
  Transmission Date: 20140515
  Serious: Yes (Hospitalization, Other)
  Sender: FDA-Public Use
  Company Number: CA-JNJFOC-20130501233

PATIENT
  Sex: Female
  Weight: 75.6 kg

DRUGS (3)
  1. REMICADE [Suspect]
     Indication: CROHN^S DISEASE
     Route: 042
     Dates: start: 20121126
  2. BUPROPION [Concomitant]
     Route: 065
  3. AMITRIPTYLINE [Concomitant]
     Route: 065

REACTIONS (2)
  - Vesical fistula [Unknown]
  - Intestinal resection [Unknown]
